FAERS Safety Report 9954170 (Version 1)
Quarter: 2014Q1

REPORT INFORMATION
  Report Type: Report from Study
  Country: US (occurrence: US)
  Receive Date: 20140304
  Receipt Date: 20140304
  Transmission Date: 20141002
  Serious: No
  Sender: FDA-Public Use
  Company Number: US-ABBVIE-13P-163-1075090-00

PATIENT
  Age: 69 Year
  Sex: Male
  Weight: 99.88 kg

DRUGS (12)
  1. HUMIRA [Suspect]
     Indication: PSORIATIC ARTHROPATHY
     Dates: start: 201301
  2. HUMIRA [Suspect]
     Indication: PSORIASIS
  3. COZAAR [Concomitant]
     Indication: HYPERTENSION
  4. FUROSEMIDE [Concomitant]
     Indication: FLUID RETENTION
  5. GABAPENTIN [Concomitant]
     Indication: PAIN
  6. OMEPRAZOLE [Concomitant]
     Indication: GASTROOESOPHAGEAL REFLUX DISEASE
  7. CARVEDILOL [Concomitant]
     Indication: HYPERTENSION
  8. TAMSULOSIN [Concomitant]
     Indication: BENIGN PROSTATIC HYPERPLASIA
  9. DOXYCYCLINE [Concomitant]
     Indication: PSORIASIS
  10. HCTZ [Concomitant]
     Indication: FLUID RETENTION
  11. WARFARIN [Concomitant]
     Indication: THROMBOSIS PROPHYLAXIS
  12. POTASSIUM [Concomitant]
     Indication: MINERAL SUPPLEMENTATION

REACTIONS (3)
  - Pruritus [Recovered/Resolved]
  - Injection site swelling [Recovered/Resolved]
  - Injection site pruritus [Recovered/Resolved]
